FAERS Safety Report 5737161-8 (Version None)
Quarter: 2008Q2

REPORT INFORMATION
  Report Type: 
  Country: None (occurrence: None)
  Receive Date: 20080514
  Receipt Date: 20080505
  Transmission Date: 20081010
  Serious: Yes (Hospitalization)
  Sender: FDA-Public Use
  Company Number: US-ROCHE-562565

PATIENT
  Age: 18 Year
  Sex: Male

DRUGS (1)
  1. CELLCEPT [Suspect]
     Indication: NEPHROTIC SYNDROME
     Route: 065

REACTIONS (1)
  - PROTEIN TOTAL INCREASED [None]
